FAERS Safety Report 7187516 (Version 4)
Quarter: 2012Q4

REPORT INFORMATION
  Report Type: 
  Country: CA (occurrence: CA)
  Receive Date: 20091124
  Receipt Date: 20121015
  Transmission Date: 20130627
  Serious: Yes (Other)
  Sender: FDA-Public Use
  Company Number: PHHY2009CA49896

PATIENT
  Sex: Female

DRUGS (8)
  1. TEGRETOL CR [Suspect]
     Indication: EPILEPSY
     Dosage: 800 mg, BID
  2. TEGRETOL CR [Suspect]
     Dosage: 500 mg, BID
  3. TEGRETOL CR [Suspect]
     Dosage: 400 mg, BID
  4. DILANTIN [Suspect]
     Dosage: 100 mg, TID, at bed time
     Dates: start: 20120704
  5. NEURONTIN [Concomitant]
  6. AMLODIPINE [Concomitant]
     Dosage: 10 mg, UNK
  7. COVERSYL [Concomitant]
     Dosage: 8 mg, UNK
  8. SYMBICORT [Concomitant]

REACTIONS (4)
  - Contusion [Unknown]
  - Convulsion [Not Recovered/Not Resolved]
  - Feeling abnormal [Unknown]
  - White blood cell count decreased [Unknown]
